APPROVED DRUG PRODUCT: NORTRIPTYLINE HYDROCHLORIDE
Active Ingredient: NORTRIPTYLINE HYDROCHLORIDE
Strength: EQ 10MG BASE
Dosage Form/Route: CAPSULE;ORAL
Application: A073556 | Product #002 | TE Code: AB
Applicant: DR REDDYS LABORATORIES SA
Approved: Mar 30, 1992 | RLD: No | RS: No | Type: RX